FAERS Safety Report 10513387 (Version 1)
Quarter: 2014Q4

REPORT INFORMATION
  Report Type: Spontaneous
  Country: US (occurrence: US)
  Receive Date: 20141013
  Receipt Date: 20141013
  Transmission Date: 20150528
  Serious: Yes (Other)
  Sender: FDA-Public Use
  Company Number: US-BAYER-2014-149240

PATIENT
  Age: 48 Year
  Sex: Female

DRUGS (6)
  1. CEFALEXIN [Concomitant]
     Active Substance: CEPHALEXIN
     Dosage: 500 MG, QID
     Route: 048
     Dates: start: 20110311
  2. OFLOXACIN. [Concomitant]
     Active Substance: OFLOXACIN
     Dosage: 2 DROPS INTO BOTH EYES EVRY 4 HOURS WHILE AWAKE FOR 2 DAYS, THEN USED 4 TIMES A DAY FOR 10 DAYS
     Route: 047
     Dates: start: 20110319
  3. YAZ [Suspect]
     Active Substance: DROSPIRENONE\ETHINYL ESTRADIOL
  4. CEPHALEXIN. [Concomitant]
     Active Substance: CEPHALEXIN
     Dosage: 500 MG, BID FOR 10 DAYS
     Route: 048
     Dates: start: 20110410, end: 20110528
  5. OSCAL [Concomitant]
     Active Substance: CALCIUM CARBONATE
     Dosage: 500/200 D-3 500-200 MG UNIT TABLET
     Dates: start: 20110311
  6. GIANVI [Suspect]
     Active Substance: DROSPIRENONE\ETHINYL ESTRADIOL

REACTIONS (2)
  - Deep vein thrombosis [Recovered/Resolved]
  - Thrombophlebitis superficial [None]

NARRATIVE: CASE EVENT DATE: 20110626
